FAERS Safety Report 13860548 (Version 2)
Quarter: 2017Q4

REPORT INFORMATION
  Report Type: Spontaneous
  Country: DE (occurrence: DE)
  Receive Date: 20170811
  Receipt Date: 20171023
  Transmission Date: 20180320
  Serious: Yes (Hospitalization, Disabling, Other)
  Sender: FDA-Public Use
  Company Number: DE-009507513-1708DEU003869

PATIENT
  Age: 66 Year
  Sex: Male
  Weight: 75 kg

DRUGS (7)
  1. L THYROX [Concomitant]
     Indication: HYPOTHYROIDISM
     Dosage: 50 MG, ^1-0-0^
  2. KEYTRUDA [Suspect]
     Active Substance: PEMBROLIZUMAB
     Indication: METASTATIC MALIGNANT MELANOMA
     Dosage: 2 MG/KG BODYWEIGHT, Q3W
     Dates: start: 20160818
  3. KEYTRUDA [Suspect]
     Active Substance: PEMBROLIZUMAB
     Indication: METASTASES TO GASTROINTESTINAL TRACT
     Dosage: 2 MG/KG BODYWEIGHT, Q3W
     Dates: start: 20170810
  4. RAMILICH [Concomitant]
     Active Substance: RAMIPRIL
     Indication: HYPERTENSION
     Dosage: 5 MG, ^1-0-1^
  5. FALITHROM [Concomitant]
     Active Substance: PHENPROCOUMON
     Indication: ATRIAL FIBRILLATION
     Dosage: 3 MG, ^1-0-0: WE + SU, 0.5-0-0: MO+TU+THU+FT+SA^
  6. KEYTRUDA [Suspect]
     Active Substance: PEMBROLIZUMAB
     Indication: METASTASES TO THE RESPIRATORY SYSTEM
     Dosage: 2 MG/KG BODYWEIGHT, Q3W, CYCLE 16
     Dates: start: 20170629, end: 20170629
  7. BISOPROLOL [Concomitant]
     Active Substance: BISOPROLOL
     Indication: HYPERTENSION
     Dosage: 2.5 MG, ^0.5-0-0.5^
     Route: 048

REACTIONS (6)
  - Adrenocortical insufficiency acute [Recovered/Resolved]
  - Vertigo [Unknown]
  - Hypothyroidism [Unknown]
  - Dyspnoea [Unknown]
  - Dizziness [Unknown]
  - Tachycardia [Unknown]

NARRATIVE: CASE EVENT DATE: 2017
